FAERS Safety Report 9540427 (Version 2)
Quarter: 2013Q4

REPORT INFORMATION
  Report Type: Spontaneous
  Country: US (occurrence: US)
  Receive Date: 20130920
  Receipt Date: 20131015
  Transmission Date: 20140711
  Serious: Yes (Other)
  Sender: FDA-Public Use
  Company Number: US-GLAXOSMITHKLINE-A1042333A

PATIENT
  Sex: Male

DRUGS (3)
  1. AVANDAMET [Suspect]
     Indication: DIABETES MELLITUS
     Dosage: 4MG TWICE PER DAY
     Route: 065
     Dates: end: 2013
  2. AVANDIA [Suspect]
     Indication: DIABETES MELLITUS
     Route: 065
  3. INSULIN [Concomitant]

REACTIONS (8)
  - Ventricular arrhythmia [Unknown]
  - Loss of consciousness [Unknown]
  - Dizziness [Unknown]
  - Heart rate irregular [Unknown]
  - Dyspnoea [Unknown]
  - Feeling hot [Unknown]
  - Hyperhidrosis [Unknown]
  - Stress [Unknown]
